FAERS Safety Report 8794158 (Version 1)
Quarter: 2012Q4

REPORT INFORMATION
  Report Type: 
  Country: US (occurrence: US)
  Receive Date: 20120918
  Receipt Date: 20120918
  Transmission Date: 20130627
  Serious: No
  Sender: FDA-Public Use
  Company Number: US-ASTRAZENECA-2012SE71056

PATIENT
  Age: 48 Year
  Sex: Male
  Weight: 82.6 kg

DRUGS (3)
  1. CRESTOR [Suspect]
     Route: 048
  2. VICODIN [Concomitant]
  3. MAXALT [Concomitant]

REACTIONS (2)
  - Insomnia [Unknown]
  - Migraine [Recovered/Resolved]
